FAERS Safety Report 17343755 (Version 1)
Quarter: 2020Q1

REPORT INFORMATION
  Report Type: Spontaneous
  Country: US (occurrence: US)
  Receive Date: 20200129
  Receipt Date: 20200129
  Transmission Date: 20200409
  Serious: No
  Sender: FDA-Public Use
  Company Number: US-009507513-2001USA008662

PATIENT
  Sex: Female

DRUGS (2)
  1. REMERON [Suspect]
     Active Substance: MIRTAZAPINE
     Dosage: 10 MILLIGRAM, DAILY
     Route: 048
  2. NORTRIPTYLINE [Suspect]
     Active Substance: NORTRIPTYLINE
     Dosage: 10 MILLIGRAM, DAILY

REACTIONS (1)
  - Malaise [Not Recovered/Not Resolved]
